FAERS Safety Report 4350415-5 (Version None)
Quarter: 2004Q2

REPORT INFORMATION
  Report Type: 
  Country: None (occurrence: None)
  Receive Date: 20040427
  Receipt Date: 20040414
  Transmission Date: 20050107
  Serious: Yes (Hospitalization)
  Sender: FDA-Public Use
  Company Number: 2004200252US

PATIENT
  Age: 76 Year
  Sex: Male
  Weight: 74.4 kg

DRUGS (8)
  1. EPIRUBICIN [Suspect]
     Indication: HEPATIC NEOPLASM MALIGNANT RECURRENT
     Dosage: 20 MG, WEEKLY, IV
     Route: 042
     Dates: start: 20031009, end: 20040212
  2. COMPARATOR-THALIDOMIDE (THALIDOMIDE, THALIDOMIDE) CAPSULE [Suspect]
     Indication: HEPATIC NEOPLASM MALIGNANT RECURRENT
     Dosage: 300 MG, QD, ORAL
     Route: 048
     Dates: start: 20031009, end: 20040219
  3. COUMADIN [Concomitant]
  4. ATENOLOL [Concomitant]
  5. NORVASC [Concomitant]
  6. COLACE (DOCUSATE SODIUM) [Concomitant]
  7. MYCELEX [Concomitant]
  8. LASIX [Concomitant]

REACTIONS (6)
  - BRONCHIECTASIS [None]
  - CRYPTOGENIC ORGANIZING PNEUMONIA [None]
  - HYPOXIA [None]
  - INTERSTITIAL LUNG DISEASE [None]
  - PULMONARY OEDEMA [None]
  - RESPIRATORY ALKALOSIS [None]
